FAERS Safety Report 5892364-7 (Version None)
Quarter: 2008Q3

REPORT INFORMATION
  Report Type: 
  Country: None (occurrence: None)
  Receive Date: 20080919
  Receipt Date: 20080919
  Transmission Date: 20090109
  Serious: Yes (Hospitalization)
  Sender: FDA-Public Use
  Company Number: None

PATIENT
  Age: 74 Year
  Sex: Male
  Weight: 74.8435 kg

DRUGS (2)
  1. SIMVASTATIN [Suspect]
     Indication: DRUG THERAPY
     Dosage: 1 TIME USE
     Dates: start: 20080611, end: 20080611
  2. LIPITOR [Suspect]

REACTIONS (5)
  - DIARRHOEA [None]
  - DRUG HYPERSENSITIVITY [None]
  - HYPERHIDROSIS [None]
  - SYNCOPE [None]
  - VOMITING [None]
